FAERS Safety Report 9668880 (Version 1)
Quarter: 2013Q4

REPORT INFORMATION
  Report Type: Spontaneous
  Country: US (occurrence: None)
  Receive Date: 20131104
  Receipt Date: 20131104
  Transmission Date: 20140711
  Serious: Yes (Disabling, Other)
  Sender: FDA-Public Use
  Company Number: None

PATIENT
  Age: 7 Year
  Sex: Male
  Weight: 31.75 kg

DRUGS (1)
  1. TRIHEXYPHENIDYL [Suspect]
     Indication: DYSTONIA
     Dosage: 2 PILLS THREE TIMES DAILY TAKEN BY MOUTH
     Dates: start: 20131001, end: 20131102

REACTIONS (8)
  - Chest pain [None]
  - Dizziness [None]
  - Heart rate increased [None]
  - Confusional state [None]
  - Hallucination [None]
  - Memory impairment [None]
  - Insomnia [None]
  - Psychomotor hyperactivity [None]
